FAERS Safety Report 11574391 (Version 1)
Quarter: 2015Q3

REPORT INFORMATION
  Report Type: Spontaneous
  Country: US (occurrence: None)
  Receive Date: 20150929
  Receipt Date: 20150929
  Transmission Date: 20151125
  Serious: No
  Sender: FDA-Public Use
  Company Number: None

PATIENT
  Age: 69 Year
  Sex: Male
  Weight: 70.31 kg

DRUGS (6)
  1. LEVOFLOXACIN 500MG TABLETS WALGREENS [Suspect]
     Active Substance: LEVOFLOXACIN
     Indication: INFLUENZA LIKE ILLNESS
     Route: 048
     Dates: start: 20150915, end: 20150915
  2. LEVOFLOXACIN 500MG TABLETS WALGREENS [Suspect]
     Active Substance: LEVOFLOXACIN
     Indication: PYREXIA
     Route: 048
     Dates: start: 20150915, end: 20150915
  3. ATORVASTATIN [Concomitant]
     Active Substance: ATORVASTATIN
  4. LEVOFLOXACIN 500MG TABLETS WALGREENS [Suspect]
     Active Substance: LEVOFLOXACIN
     Indication: BACTERIAL INFECTION
     Route: 048
     Dates: start: 20150915, end: 20150915
  5. CENTRUM SILVER MALE MULTIVITAMIN [Concomitant]
  6. LEVOFLOXACIN 500MG TABLETS WALGREENS [Suspect]
     Active Substance: LEVOFLOXACIN
     Indication: HEADACHE
     Route: 048
     Dates: start: 20150915, end: 20150915

REACTIONS (6)
  - Joint swelling [None]
  - Arthralgia [None]
  - Gait disturbance [None]
  - Pain [None]
  - Grip strength decreased [None]
  - Muscular weakness [None]

NARRATIVE: CASE EVENT DATE: 20150915
